FAERS Safety Report 13398479 (Version 3)
Quarter: 2018Q1

REPORT INFORMATION
  Report Type: Report from Study
  Country: US (occurrence: US)
  Receive Date: 20170403
  Receipt Date: 20180313
  Transmission Date: 20180508
  Serious: Yes (Death, Other)
  Sender: FDA-Public Use
  Company Number: US-009507513-1703USA013807

PATIENT
  Sex: Male

DRUGS (2)
  1. KEYTRUDA [Suspect]
     Active Substance: PEMBROLIZUMAB
     Dosage: UNK
     Dates: start: 20170131, end: 20170131
  2. KEYTRUDA [Suspect]
     Active Substance: PEMBROLIZUMAB
     Dosage: UNK
     Dates: start: 20170110, end: 20170110

REACTIONS (2)
  - Asthenia [Unknown]
  - Malignant neoplasm progression [Fatal]

NARRATIVE: CASE EVENT DATE: 2017
